FAERS Safety Report 6470961-8 (Version None)
Quarter: 2009Q4

REPORT INFORMATION
  Report Type: 
  Country: None (occurrence: None)
  Receive Date: 20091203
  Receipt Date: 20080314
  Transmission Date: 20100525
  Serious: Yes (Death, Hospitalization, Other)
  Sender: FDA-Public Use
  Company Number: GB-ELI_LILLY_AND_COMPANY-GB200801004169

PATIENT
  Sex: Male

DRUGS (7)
  1. CYMBALTA [Suspect]
     Indication: DEPRESSION
     Dosage: 60 MG, QOD
     Route: 048
     Dates: start: 20071222, end: 20080103
  2. DEPIXOL [Concomitant]
     Indication: SCHIZOPHRENIA
     Dosage: UNK, EVERY FOUR WEEKS
     Route: 030
     Dates: end: 20080103
  3. AMITRIPTYLINE [Concomitant]
     Indication: PAIN IN EXTREMITY
     Dosage: UNK, UNKNOWN
     Route: 048
     Dates: start: 20071219, end: 20080103
  4. PARACETAMOL [Concomitant]
     Indication: ANALGESIC THERAPY
     Dosage: UNK, AS NEEDED
     Route: 048
     Dates: end: 20080103
  5. FRUSEMIDE [Concomitant]
     Dosage: 20 MG, UNKNOWN
     Dates: end: 20080103
  6. LOSEC [Concomitant]
     Dosage: 20 MG, UNKNOWN
     Dates: end: 20080103
  7. FERROUS SULFATE TAB [Concomitant]
     Dosage: 200 MG, 2/D
     Dates: end: 20080103

REACTIONS (7)
  - CARDIAC ARREST [None]
  - CHRONIC OBSTRUCTIVE PULMONARY DISEASE [None]
  - GENERAL PHYSICAL HEALTH DETERIORATION [None]
  - HYPOPHAGIA [None]
  - LETHARGY [None]
  - MOBILITY DECREASED [None]
  - PNEUMONIA [None]
